FAERS Safety Report 5680664-5 (Version None)
Quarter: 2008Q1

REPORT INFORMATION
  Report Type: 
  Country: None (occurrence: None)
  Receive Date: 20080326
  Receipt Date: 20070517
  Transmission Date: 20080703
  Serious: No
  Sender: FDA-Public Use
  Company Number: US-BAUSCH-2007BL001622

PATIENT
  Age: 59 Year
  Sex: Male

DRUGS (6)
  1. LOTEMAX [Suspect]
     Indication: EYELID PTOSIS
     Route: 047
     Dates: start: 20070503, end: 20070503
  2. LOTEMAX [Suspect]
     Indication: OFF LABEL USE
     Route: 047
     Dates: start: 20070503, end: 20070503
  3. LOTEMAX [Suspect]
     Route: 047
     Dates: start: 20070504, end: 20070504
  4. LOTEMAX [Suspect]
     Route: 047
     Dates: start: 20070504, end: 20070504
  5. ANTIHYPERTENSIVES [Concomitant]
  6. ^UNSPECIFIED SUGAR PILL^ [Concomitant]

REACTIONS (1)
  - DIPLOPIA [None]
